FAERS Safety Report 13341096 (Version 2)
Quarter: 2017Q2

REPORT INFORMATION
  Report Type: Spontaneous
  Country: US (occurrence: US)
  Receive Date: 20170316
  Receipt Date: 20170413
  Transmission Date: 20170830
  Serious: Yes (Other)
  Sender: FDA-Public Use
  Company Number: US-ASTELLAS-2017US010092

PATIENT
  Age: 79 Year
  Sex: Male

DRUGS (2)
  1. CASODEX [Concomitant]
     Active Substance: BICALUTAMIDE
     Indication: PROSTATIC SPECIFIC ANTIGEN INCREASED
     Route: 065
     Dates: start: 20161130, end: 20170126
  2. XTANDI [Suspect]
     Active Substance: ENZALUTAMIDE
     Indication: PROSTATE CANCER
     Route: 048
     Dates: start: 20170201, end: 20170221

REACTIONS (2)
  - Malignant neoplasm progression [Unknown]
  - Urethral obstruction [Unknown]

NARRATIVE: CASE EVENT DATE: 201702
